FAERS Safety Report 13915395 (Version 1)
Quarter: 2017Q3

REPORT INFORMATION
  Report Type: Spontaneous
  Country: JP (occurrence: JP)
  Receive Date: 20170829
  Receipt Date: 20170829
  Transmission Date: 20171127
  Serious: Yes (Other)
  Sender: FDA-Public Use
  Company Number: JP-ELI_LILLY_AND_COMPANY-JP201708010004

PATIENT
  Age: 65 Year
  Sex: Female

DRUGS (3)
  1. DULOXETINE HYDROCHLORIDE. [Suspect]
     Active Substance: DULOXETINE HYDROCHLORIDE
     Dosage: 60 MG, DAILY
     Route: 048
     Dates: start: 201707, end: 20170821
  2. DULOXETINE HYDROCHLORIDE. [Suspect]
     Active Substance: DULOXETINE HYDROCHLORIDE
     Indication: CAUDA EQUINA SYNDROME
     Dosage: UNK
     Route: 048
     Dates: start: 201707, end: 201707
  3. GABAPEN [Concomitant]
     Active Substance: GABAPENTIN

REACTIONS (3)
  - Intentional self-injury [Unknown]
  - Off label use [Recovered/Resolved]
  - Poriomania [Unknown]

NARRATIVE: CASE EVENT DATE: 201707
